FAERS Safety Report 23067109 (Version 1)
Quarter: 2023Q4

REPORT INFORMATION
  Report Type: Spontaneous
  Country: US (occurrence: US)
  Receive Date: 20231016
  Receipt Date: 20231016
  Transmission Date: 20240110
  Serious: Yes (Other)
  Sender: FDA-Public Use
  Company Number: US-AMGEN-USASP2023180635

PATIENT
  Age: 79 Year
  Sex: Female

DRUGS (1)
  1. TAVNEOS [Suspect]
     Active Substance: AVACOPAN
     Indication: Granulomatosis with polyangiitis
     Dosage: 30 MILLIGRAM, BID (3 CAPSULES TWICE A DAY WITH FOOD)
     Route: 048
     Dates: start: 20230915

REACTIONS (9)
  - Renal disorder [Unknown]
  - Haemorrhage [Unknown]
  - Epistaxis [Unknown]
  - Symptom recurrence [Unknown]
  - Stomatitis [Unknown]
  - Ear discomfort [Unknown]
  - Sinus disorder [Unknown]
  - Eating disorder [Unknown]
  - Drug ineffective [Unknown]

NARRATIVE: CASE EVENT DATE: 20230101
